FAERS Safety Report 5508402-7 (Version None)
Quarter: 2007Q4

REPORT INFORMATION
  Report Type: 
  Country: None (occurrence: None)
  Receive Date: 20071107
  Receipt Date: 20071101
  Transmission Date: 20080405
  Serious: Yes (Hospitalization)
  Sender: FDA-Public Use
  Company Number: PHHO2007US15042

PATIENT
  Age: 16 Year
  Sex: Female
  Weight: 42.7 kg

DRUGS (4)
  1. DESFERAL [Suspect]
     Indication: HAEMOSIDEROSIS
     Dosage: 1750 MG, QD
     Route: 048
     Dates: start: 20040805
  2. TUMS [Concomitant]
  3. DESFERAL [Suspect]
     Indication: HAEMOSIDEROSIS
  4. DESFERAL [Suspect]
     Dosage: NO TREATMENT
     Dates: start: 20040805

REACTIONS (4)
  - DIARRHOEA [None]
  - DIZZINESS [None]
  - FAECES DISCOLOURED [None]
  - UPPER GASTROINTESTINAL HAEMORRHAGE [None]
